FAERS Safety Report 16774450 (Version 7)
Quarter: 2021Q1

REPORT INFORMATION
  Report Type: Report from Study
  Country: None (occurrence: NL)
  Receive Date: 20190905
  Receipt Date: 20210222
  Transmission Date: 20210419
  Serious: Yes (Death, Other)
  Sender: FDA-Public Use
  Company Number: NL-ABBVIE-19K-114-2876370-00

PATIENT
  Age: 76 Year
  Sex: Male

DRUGS (5)
  1. DUODOPA [Suspect]
     Active Substance: CARBIDOPA\LEVODOPA
     Dosage: NO ED OR MD USE; CD: 5 ML/H; CND: 2 ML/H;?REMAINS AT 24 HOURS
     Route: 050
  2. NEUPRO [Concomitant]
     Active Substance: ROTIGOTINE
     Indication: PRODUCT USED FOR UNKNOWN INDICATION
     Dosage: 4MG/24H PLASTER
  3. DUODOPA [Suspect]
     Active Substance: CARBIDOPA\LEVODOPA
     Indication: PARKINSON^S DISEASE
     Dosage: MD: 54; CD: 50; ED: 10ML?REMAINS AT 16 HOURS
     Route: 050
  4. MOVICOLON [Concomitant]
     Active Substance: POLYETHYLENE GLYCOL 3350\POTASSIUM CHLORIDE\SODIUM BICARBONATE\SODIUM CHLORIDE
     Indication: PRODUCT USED FOR UNKNOWN INDICATION
     Route: 065
  5. DUODOPA [Suspect]
     Active Substance: CARBIDOPA\LEVODOPA
     Dosage: CD 7 ML/H CND 2 ML/H
     Route: 050

REACTIONS (10)
  - Drug ineffective [Recovered/Resolved]
  - Constipation [Unknown]
  - Dyspnoea [Unknown]
  - Pruritus [Unknown]
  - General physical health deterioration [Not Recovered/Not Resolved]
  - Amyotrophic lateral sclerosis [Fatal]
  - Extremity contracture [Not Recovered/Not Resolved]
  - Drug ineffective [Not Recovered/Not Resolved]
  - Palliative sedation [Not Recovered/Not Resolved]
  - General physical health deterioration [Recovered/Resolved]

NARRATIVE: CASE EVENT DATE: 20210213
